FAERS Safety Report 5468552-0 (Version None)
Quarter: 2007Q3

REPORT INFORMATION
  Report Type: 
  Country: None (occurrence: None)
  Receive Date: 20070820
  Receipt Date: 20070621
  Transmission Date: 20080115
  Serious: No
  Sender: FDA-Public Use
  Company Number: WAES 0706USA04233

PATIENT
  Age: 74 Year
  Sex: Female

DRUGS (17)
  1. JANUVIA [Suspect]
     Indication: TYPE 2 DIABETES MELLITUS
     Dosage: 100 MG/ DAILY/ PO; 100 MG/ DAILY/ PO
     Route: 048
     Dates: start: 20070611, end: 20070616
  2. JANUVIA [Suspect]
     Indication: TYPE 2 DIABETES MELLITUS
     Dosage: 100 MG/ DAILY/ PO; 100 MG/ DAILY/ PO
     Route: 048
     Dates: start: 20070619
  3. ALLEGRA [Concomitant]
  4. AMARYL [Concomitant]
  5. AVANDIA [Concomitant]
  6. BYETTA [Concomitant]
  7. DARVOCET [Concomitant]
  8. DIGITEK [Concomitant]
  9. DIOVAN [Concomitant]
  10. KLOR-CON [Concomitant]
  11. LIPITOR [Concomitant]
  12. TRICOR [Concomitant]
  13. THERAPY UNSPECIFIED [Concomitant]
  14. ALPRAZOLAM [Concomitant]
  15. HYDROCHLOROTHIAZIDE [Concomitant]
  16. IPRATROPIUM BROMIDE [Concomitant]
  17. METFORMIN [Concomitant]

REACTIONS (2)
  - PARAESTHESIA [None]
  - PRURITUS [None]
